FAERS Safety Report 7938073-1 (Version None)
Quarter: 2011Q4

REPORT INFORMATION
  Report Type: 
  Country: None (occurrence: None)
  Receive Date: 20111123
  Receipt Date: 20111114
  Transmission Date: 20120403
  Serious: Yes (Other)
  Sender: FDA-Public Use
  Company Number: US-ASTRAZENECA-2011SE44693

PATIENT
  Age: 81 Year
  Sex: Female

DRUGS (2)
  1. CRESTOR [Suspect]
     Route: 048
  2. METOPROLOL SUCCINATE [Concomitant]
     Route: 048

REACTIONS (3)
  - HEART VALVE INCOMPETENCE [None]
  - ATRIAL FIBRILLATION [None]
  - WRONG DRUG ADMINISTERED [None]
